FAERS Safety Report 10609990 (Version 2)
Quarter: 2014Q4

REPORT INFORMATION
  Report Type: Spontaneous
  Country: JP (occurrence: JP)
  Receive Date: 20141126
  Receipt Date: 20141209
  Transmission Date: 20150529
  Serious: Yes (Other)
  Sender: FDA-Public Use
  Company Number: JP-PFIZER INC-2014325173

PATIENT
  Age: 82 Year
  Sex: Male

DRUGS (11)
  1. ROHYPNOL [Concomitant]
     Active Substance: FLUNITRAZEPAM
     Dosage: 2 MG, DAILY
  2. SUCROSE [Concomitant]
     Active Substance: SUCROSE
  3. OPALMON [Concomitant]
     Active Substance: LIMAPROST
  4. BENZALIN [Concomitant]
     Active Substance: NITRAZEPAM
     Dosage: 5 MG, DAILY
  5. GASTER [Concomitant]
     Active Substance: FAMOTIDINE
  6. TRAMCET [Concomitant]
     Active Substance: ACETAMINOPHEN\TRAMADOL
  7. METHYCOBAL [Concomitant]
     Active Substance: METHYLCOBALAMIN
  8. QUETIAPINE [Concomitant]
     Active Substance: QUETIAPINE
     Dosage: 200 MG, DAILY
  9. SERENACE [Concomitant]
     Active Substance: HALOPERIDOL
     Dosage: 2 MG, DAILY
  10. THYRADIN S [Concomitant]
     Active Substance: LEVOTHYROXINE SODIUM
  11. LYRICA [Suspect]
     Active Substance: PREGABALIN
     Dosage: UNK
     Route: 048

REACTIONS (3)
  - Seizure [Unknown]
  - Loss of consciousness [Unknown]
  - Epilepsy [Unknown]

NARRATIVE: CASE EVENT DATE: 20141125
